FAERS Safety Report 8237139-9 (Version None)
Quarter: 2012Q1

REPORT INFORMATION
  Report Type: 
  Country: None (occurrence: None)
  Receive Date: 20120327
  Receipt Date: 20120314
  Transmission Date: 20120608
  Serious: Yes (Other)
  Sender: FDA-Public Use
  Company Number: JP-UCBSA-052974

PATIENT
  Age: 40 Year
  Sex: Male

DRUGS (4)
  1. TEGRETOL [Suspect]
     Indication: EPILEPSY
     Route: 048
     Dates: start: 20110101, end: 20120101
  2. NO CONCOMITANT MEDICATION [Concomitant]
  3. LOXONIN [Suspect]
  4. KEPPRA [Suspect]
     Indication: EPILEPSY
     Route: 048
     Dates: start: 20110101

REACTIONS (1)
  - RENAL IMPAIRMENT [None]
